FAERS Safety Report 17066281 (Version 1)
Quarter: 2019Q4

REPORT INFORMATION
  Report Type: Spontaneous
  Country: SI (occurrence: SI)
  Receive Date: 20191122
  Receipt Date: 20191122
  Transmission Date: 20200122
  Serious: Yes (Death, Other)
  Sender: FDA-Public Use
  Company Number: SI-JNJFOC-20190737970

PATIENT
  Age: 86 Year
  Sex: Female

DRUGS (9)
  1. DORETA [Concomitant]
     Active Substance: ACETAMINOPHEN\TRAMADOL HYDROCHLORIDE
     Dosage: UNK UNK, PRN
  2. RIVAROXABAN [Suspect]
     Active Substance: RIVAROXABAN
     Dosage: UNK
     Route: 048
     Dates: start: 201309, end: 201309
  3. VALSACOR [Concomitant]
     Active Substance: VALSARTAN
  4. PLIVIT D3 [Concomitant]
     Active Substance: CHOLECALCIFEROL
  5. CONCOR [Concomitant]
     Active Substance: BISOPROLOL FUMARATE
  6. LANITOP [Concomitant]
     Active Substance: METILDIGOXIN
  7. ULTOP                              /00661201/ [Concomitant]
  8. RIVAROXABAN [Suspect]
     Active Substance: RIVAROXABAN
     Indication: ATRIAL FIBRILLATION
     Dosage: 15 MG, QD
     Route: 048
     Dates: start: 201509, end: 201509
  9. EDEMID [Concomitant]
     Active Substance: FUROSEMIDE

REACTIONS (5)
  - Haemarthrosis [Unknown]
  - Joint swelling [Unknown]
  - Haemarthrosis [Unknown]
  - Renal impairment [Unknown]
  - Joint effusion [Unknown]

NARRATIVE: CASE EVENT DATE: 201509
